FAERS Safety Report 12203989 (Version 9)
Quarter: 2016Q2

REPORT INFORMATION
  Report Type: Spontaneous
  Country: JP (occurrence: JP)
  Receive Date: 20160323
  Receipt Date: 20160506
  Transmission Date: 20160815
  Serious: Yes (Death, Hospitalization, Other)
  Sender: FDA-Public Use
  Company Number: JP-MDT-ADR-2016-00540

PATIENT
  Age: 60 Year
  Sex: Male
  Weight: 47 kg

DRUGS (5)
  1. GABALON [Suspect]
     Active Substance: BACLOFEN
     Indication: MULTIPLE SCLEROSIS
     Dosage: 25.0 MCG/ ONCE A DAY
     Route: 037
     Dates: start: 20101006
  2. GABALON [Suspect]
     Active Substance: BACLOFEN
     Indication: MULTIPLE SCLEROSIS
     Dosage: 20 ML/ONCE A DAY
     Route: 037
     Dates: start: 20100908, end: 20150930
  3. GABALON [Suspect]
     Active Substance: BACLOFEN
     Indication: MULTIPLE SCLEROSIS
     Dosage: 1 MCG/ONCE A DAY
     Route: 037
     Dates: start: 20100908, end: 20150930
  4. GABALON [Suspect]
     Active Substance: BACLOFEN
     Indication: MULTIPLE SCLEROSIS
     Dosage: 8 MCG/DAY
     Route: 037
     Dates: start: 20101006, end: 20151025
  5. GABALON [Suspect]
     Active Substance: BACLOFEN
     Indication: MULTIPLE SCLEROSIS
     Dosage: 1 ML/ ONCE A DAY
     Route: 037
     Dates: start: 20100908, end: 20150930

REACTIONS (3)
  - Dysphagia [Fatal]
  - Pneumonia aspiration [Fatal]
  - Oropharyngeal cancer [Fatal]
